FAERS Safety Report 8916411 (Version 1)
Quarter: 2012Q4

REPORT INFORMATION
  Report Type: 
  Country: GB (occurrence: GB)
  Receive Date: 20121120
  Receipt Date: 20121120
  Transmission Date: 20130627
  Serious: Yes (Life-Threatening)
  Sender: FDA-Public Use
  Company Number: GB-WATSON-2012-19437

PATIENT
  Age: 60 Year
  Sex: Male
  Weight: 107 kg

DRUGS (8)
  1. PREDNISOLONE (UNKNOWN) [Suspect]
     Indication: COLITIS ULCERATIVE
     Dosage: 40 mg, unknown. 14.9.12 2nd course 40 mg tapering 5 mg weekl
     Route: 048
     Dates: start: 20120914
  2. PREDNISOLONE (UNKNOWN) [Suspect]
     Dosage: 30 mg, unknown. 13.6.12 - 1st course 30 mg then tapering by 5mg weekly.
     Route: 048
     Dates: start: 20120613
  3. ASPIRIN [Concomitant]
     Indication: PRODUCT USED FOR UNKNOWN INDICATION
     Dosage: UNK,
     Route: 065
  4. PIROXICAM [Concomitant]
     Indication: VEIN DISORDER
     Dosage: UNK,
     Route: 065
  5. OMEPRAZOLE [Concomitant]
     Indication: PRODUCT USED FOR UNKNOWN INDICATION
     Dosage: UNK,
     Route: 065
  6. MESALAZINE [Concomitant]
     Indication: PRODUCT USED FOR UNKNOWN INDICATION
     Dosage: UNK,
     Route: 065
  7. ADCAL                              /00056901/ [Concomitant]
     Indication: PRODUCT USED FOR UNKNOWN INDICATION
     Dosage: UNK,
     Route: 065
  8. PROCTOSEDYL (DENMARK) [Suspect]
     Indication: HAEMORRHOIDS
     Dosage: UNK,
     Route: 065

REACTIONS (4)
  - Deep vein thrombosis [Unknown]
  - Pain in extremity [Unknown]
  - Oedema peripheral [Unknown]
  - Inflammation [Unknown]
